FAERS Safety Report 18849815 (Version 2)
Quarter: 2021Q1

REPORT INFORMATION
  Report Type: Report from Study
  Country: FR (occurrence: FR)
  Receive Date: 20210204
  Receipt Date: 20210317
  Transmission Date: 20210420
  Serious: Yes (Disabling)
  Sender: FDA-Public Use
  Company Number: FR-US-PROVELL PHARMACEUTICALS LLC-9076903

PATIENT
  Sex: Female

DRUGS (11)
  1. LEVOTHYROX [Suspect]
     Active Substance: LEVOTHYROXINE
     Indication: POST PROCEDURAL HYPOTHYROIDISM
     Dosage: OLD FORMULATION
     Dates: end: 201705
  2. LEVOTHYROX [Suspect]
     Active Substance: LEVOTHYROXINE
     Dosage: LEVOTHYROX FROM MOROCCO
  3. EUTHYROX [Suspect]
     Active Substance: LEVOTHYROXINE SODIUM
     Indication: POST PROCEDURAL HYPOTHYROIDISM
     Dosage: THERAPY START DATE : 29 SEP 2017, FROM LUXEMBURG AND PORTUGAL
  4. EUTHYROX [Suspect]
     Active Substance: LEVOTHYROXINE SODIUM
     Indication: GOITRE
  5. TEMERIT DUO [Concomitant]
     Active Substance: HYDROCHLOROTHIAZIDE\NEBIVOLOL HYDROCHLORIDE
     Indication: HYPERTENSION
     Dosage: 5 MG/12 MG
     Dates: start: 201606
  6. TRAMADOL. [Concomitant]
     Active Substance: TRAMADOL
     Indication: BACK PAIN
  7. EPITOMAX [Concomitant]
     Active Substance: TOPIRAMATE
     Indication: NEURALGIA
  8. LEVOTHYROX [Suspect]
     Active Substance: LEVOTHYROXINE
     Indication: GOITRE
     Dosage: THERAPY START DATE : MAY 2017, NEW FORMULATION
     Dates: end: 201709
  9. SKENAN [Concomitant]
     Active Substance: MORPHINE SULFATE
     Indication: PRODUCT USED FOR UNKNOWN INDICATION
     Dates: start: 2015
  10. SKENAN [Concomitant]
     Active Substance: MORPHINE SULFATE
     Dates: start: 201709
  11. ACTISKENAN [Concomitant]
     Active Substance: MORPHINE SULFATE
     Indication: PRODUCT USED FOR UNKNOWN INDICATION
     Dates: start: 2015

REACTIONS (15)
  - Amnesia [Not Recovered/Not Resolved]
  - Self esteem decreased [Recovering/Resolving]
  - Disease complication [Unknown]
  - Paraesthesia [Recovering/Resolving]
  - Insomnia [Recovering/Resolving]
  - Muscle spasms [Recovering/Resolving]
  - Disturbance in attention [Not Recovered/Not Resolved]
  - Pain in extremity [Recovering/Resolving]
  - Fatigue [Recovering/Resolving]
  - Illness [Recovering/Resolving]
  - Keratitis [Recovering/Resolving]
  - Unevaluable event [Recovering/Resolving]
  - Headache [Recovering/Resolving]
  - Alopecia [Recovering/Resolving]
  - Myalgia [Recovering/Resolving]

NARRATIVE: CASE EVENT DATE: 2017
